FAERS Safety Report 6958576-6 (Version None)
Quarter: 2010Q3

REPORT INFORMATION
  Report Type: 
  Country: None (occurrence: None)
  Receive Date: 20100831
  Receipt Date: 20100823
  Transmission Date: 20110219
  Serious: Yes (Hospitalization)
  Sender: FDA-Public Use
  Company Number: US-US-EMD SERONO, INC.-7015621

PATIENT
  Sex: Female
  Weight: 59 kg

DRUGS (7)
  1. REBIF [Suspect]
     Indication: MULTIPLE SCLEROSIS
     Route: 058
     Dates: start: 20080822
  2. NEURONTIN [Concomitant]
  3. TOPROL-XL [Concomitant]
     Indication: HYPERTENSION
  4. ALTACE [Concomitant]
     Indication: HYPERTENSION
  5. ALBUTEROL [Concomitant]
     Indication: ASTHMA
  6. LEXAPRO [Concomitant]
     Indication: DEPRESSION
  7. VITAMIN D [Concomitant]
     Indication: PROPHYLAXIS

REACTIONS (11)
  - BACK PAIN [None]
  - CONTUSION [None]
  - EXOSTOSIS [None]
  - INTERVERTEBRAL DISC PROTRUSION [None]
  - MIGRAINE [None]
  - MUSCLE SPASMS [None]
  - NECK PAIN [None]
  - ROAD TRAFFIC ACCIDENT [None]
  - SPONDYLITIS [None]
  - TRAUMATIC HAEMATOMA [None]
  - TREMOR [None]
